FAERS Safety Report 18110689 (Version 4)
Quarter: 2021Q1

REPORT INFORMATION
  Report Type: Report from Study
  Country: DE (occurrence: DE)
  Receive Date: 20200804
  Receipt Date: 20210326
  Transmission Date: 20210419
  Serious: Yes (Hospitalization)
  Sender: FDA-Public Use
  Company Number: DE-PFIZER INC-2020278698

PATIENT
  Age: 49 Year
  Sex: Female
  Weight: 62.1 kg

DRUGS (12)
  1. MIRTAZAPINA [Concomitant]
     Active Substance: MIRTAZAPINE
     Indication: ANXIETY DISORDER
     Dosage: 45 MG, 1X/DAY
     Route: 048
     Dates: start: 20200417
  2. DEKRISTOL [Concomitant]
     Active Substance: CHOLECALCIFEROL
     Indication: SUPPLEMENTATION THERAPY
     Dosage: 20000 IU, WEEKLY
     Route: 048
     Dates: start: 20200409
  3. PREGABALIN. [Suspect]
     Active Substance: PREGABALIN
     Indication: NEURALGIA
     Dosage: 25 MG, 1X/DAY
     Route: 048
     Dates: start: 20200716, end: 20200719
  4. PROGRAF [Concomitant]
     Active Substance: TACROLIMUS
     Indication: IMMUNOSUPPRESSION
     Dosage: 2.5 MG, 2X/DAY
     Route: 048
     Dates: start: 20200511, end: 20200719
  5. DAUNORUBICIN HCL [Suspect]
     Active Substance: DAUNORUBICIN HYDROCHLORIDE
     Indication: ACUTE MYELOID LEUKAEMIA
     Dosage: (INDUCTION) 60 MG/M2, DAILY BY CONTINUOUS INFUSION
     Route: 041
     Dates: start: 20191129, end: 20191220
  6. CYTARABINE. [Suspect]
     Active Substance: CYTARABINE
     Indication: ACUTE MYELOID LEUKAEMIA
     Dosage: (INDUCTION) 100 MG/M2, DAILY BY CONTINUOUS INFUSION
     Route: 041
     Dates: start: 20191127, end: 20191224
  7. GLASDEGIB [Suspect]
     Active Substance: GLASDEGIB
     Indication: ACUTE MYELOID LEUKAEMIA
     Dosage: UNK, ONCE DAILY CONTINUOUS
     Route: 048
     Dates: start: 20191127, end: 20200109
  8. GLASDEGIB [Suspect]
     Active Substance: GLASDEGIB
     Dosage: UNK, ONCE DAILY CONTINUOUS
     Route: 048
     Dates: start: 20200518, end: 20200715
  9. KALINOR RETARD [Concomitant]
     Active Substance: POTASSIUM CHLORIDE
     Indication: SUPPLEMENTATION THERAPY
     Dosage: 600 MG, 3X/DAY
     Route: 048
     Dates: start: 20200417, end: 20200715
  10. ALDACTONE [Concomitant]
     Active Substance: SPIRONOLACTONE
     Indication: PROPHYLAXIS
     Dosage: 25 MG, 1X/DAY
     Route: 048
     Dates: start: 20200403, end: 20200716
  11. FLUCONAZOL [Concomitant]
     Active Substance: FLUCONAZOLE
     Indication: INFECTION PROPHYLAXIS
     Dosage: 200 MG, 1 EVERY 2 DAYS
     Route: 048
     Dates: start: 20200414, end: 20200714
  12. PANTOPRAZOL [PANTOPRAZOLE] [Concomitant]
     Active Substance: PANTOPRAZOLE
     Indication: PROPHYLAXIS
     Dosage: 20 MG, 1X/DAY
     Route: 048
     Dates: start: 20200615

REACTIONS (1)
  - Hyponatraemia [Recovered/Resolved]

NARRATIVE: CASE EVENT DATE: 20200715
